FAERS Safety Report 5793754-3 (Version None)
Quarter: 2008Q2

REPORT INFORMATION
  Report Type: 
  Country: None (occurrence: None)
  Receive Date: 20080627
  Receipt Date: 20080617
  Transmission Date: 20081010
  Serious: Yes (Other)
  Sender: FDA-Public Use
  Company Number: US-PFIZER INC-2008052161

PATIENT
  Sex: Female

DRUGS (2)
  1. CHANTIX [Suspect]
  2. LYRICA [Suspect]

REACTIONS (3)
  - DISABILITY [None]
  - MALAISE [None]
  - WEIGHT INCREASED [None]
